FAERS Safety Report 13233827 (Version 4)
Quarter: 2017Q1

REPORT INFORMATION
  Report Type: Report from Study
  Country: CO (occurrence: CO)
  Receive Date: 20170215
  Receipt Date: 20170323
  Transmission Date: 20170428
  Serious: Yes (Other)
  Sender: FDA-Public Use
  Company Number: CO-ROCHE-1893810

PATIENT
  Age: 64 Year
  Sex: Female

DRUGS (1)
  1. AVASTIN [Suspect]
     Active Substance: BEVACIZUMAB
     Indication: OVARIAN CANCER
     Dosage: 315 MG EVERY 14 DAYS
     Route: 042
     Dates: start: 20160613, end: 20161219

REACTIONS (3)
  - Blindness [Not Recovered/Not Resolved]
  - Asthenia [Recovered/Resolved]
  - Eye operation complication [Recovered/Resolved with Sequelae]

NARRATIVE: CASE EVENT DATE: 201611
